FAERS Safety Report 12652674 (Version 1)
Quarter: 2016Q3

REPORT INFORMATION
  Report Type: Spontaneous
  Country: PT (occurrence: PT)
  Receive Date: 20160815
  Receipt Date: 20160815
  Transmission Date: 20161109
  Serious: Yes (Death)
  Sender: FDA-Public Use
  Company Number: PT-BAYER-2016-153726

PATIENT
  Age: 56 Year
  Sex: Female

DRUGS (1)
  1. SORAFENIB (RAF KINASE INHIBITOR) [Suspect]
     Active Substance: SORAFENIB
     Indication: PAPILLARY THYROID CANCER
     Dosage: MAXIMUM TOLERATED DOSE 600 MG PER DAY

REACTIONS (4)
  - Papillary thyroid cancer [Fatal]
  - Drug ineffective for unapproved indication [None]
  - Off label use [None]
  - Rash maculo-papular [None]
